FAERS Safety Report 21513467 (Version 1)
Quarter: 2022Q4

REPORT INFORMATION
  Report Type: Spontaneous
  Country: US (occurrence: US)
  Receive Date: 20221027
  Receipt Date: 20221027
  Transmission Date: 20230113
  Serious: No
  Sender: FDA-Public Use
  Company Number: US-drreddys-SPO/USA/22/0155606

PATIENT
  Age: 32 Year
  Sex: Female

DRUGS (2)
  1. ZENATANE [Suspect]
     Active Substance: ISOTRETINOIN
     Indication: Acne
     Dosage: RMA ISSUE DATE: 02 MARCH 2022 08:43:23 AM, 30 JUNE 2022 08:28:16 AM, 27 JULY 2022 06:14:24 PM, 31 AU
  2. ZENATANE [Suspect]
     Active Substance: ISOTRETINOIN
     Dosage: RMA ISSUE DATE: 04 APRIL 2022 11:28:47 AM, 07 MAY 2022 12:38:34 PM, 06JUNE 2022 05:21:01 PM.

REACTIONS (2)
  - Myalgia [Unknown]
  - Arthralgia [Unknown]
